FAERS Safety Report 4278122-8 (Version None)
Quarter: 2004Q1

REPORT INFORMATION
  Report Type: 
  Country: None (occurrence: None)
  Receive Date: 20040123
  Receipt Date: 20020516
  Transmission Date: 20041129
  Serious: Yes (Hospitalization, Other)
  Sender: FDA-Public Use
  Company Number: WAES 0205USA02116

PATIENT
  Age: 64 Year
  Sex: Male
  Weight: 80 kg

DRUGS (3)
  1. CELEBREX [Concomitant]
     Dates: start: 19990401, end: 19990801
  2. VIOXX [Suspect]
     Indication: BACK PAIN
     Route: 048
     Dates: start: 19991103, end: 20010226
  3. VIOXX [Suspect]
     Indication: BACK INJURY
     Route: 048
     Dates: start: 19991103, end: 20010226

REACTIONS (4)
  - CORONARY ARTERY DISEASE [None]
  - CORONARY ARTERY REOCCLUSION [None]
  - MYOCARDIAL INFARCTION [None]
  - VASCULAR BYPASS DYSFUNCTION [None]
